FAERS Safety Report 16425714 (Version 2)
Quarter: 2019Q3

REPORT INFORMATION
  Report Type: Spontaneous
  Country: US (occurrence: US)
  Receive Date: 20190613
  Receipt Date: 20190812
  Transmission Date: 20191004
  Serious: No
  Sender: FDA-Public Use
  Company Number: US-PFIZER INC-2019251443

PATIENT
  Age: 80 Year
  Sex: Male
  Weight: 99.79 kg

DRUGS (3)
  1. LYRICA [Suspect]
     Active Substance: PREGABALIN
     Indication: NEURALGIA
     Dosage: 100 MG, 3X/DAY
     Route: 048
  2. LYRICA [Suspect]
     Active Substance: PREGABALIN
     Dosage: 150 MG, AT ONCE
     Dates: start: 2017
  3. LYRICA [Suspect]
     Active Substance: PREGABALIN
     Dosage: 100 MG, 3X/DAY
     Route: 048

REACTIONS (3)
  - Intentional product misuse [Unknown]
  - Therapeutic response shortened [Unknown]
  - Intentional dose omission [Unknown]

NARRATIVE: CASE EVENT DATE: 2017
